FAERS Safety Report 21114744 (Version 3)
Quarter: 2024Q1

REPORT INFORMATION
  Report Type: Report from Study
  Country: CL (occurrence: CL)
  Receive Date: 20220721
  Receipt Date: 20240111
  Transmission Date: 20240410
  Serious: Yes (Hospitalization, Other)
  Sender: FDA-Public Use
  Company Number: CL-NOVARTISPH-NVSC2022CL162942

PATIENT
  Age: 67 Year
  Sex: Female

DRUGS (2)
  1. COSENTYX [Suspect]
     Active Substance: SECUKINUMAB
     Indication: Psoriatic arthropathy
     Dosage: 300 MG, QMO
     Route: 058
     Dates: start: 20220511
  2. COSENTYX [Suspect]
     Active Substance: SECUKINUMAB
     Dosage: 150 MG
     Route: 058
     Dates: start: 20220816

REACTIONS (11)
  - Angina unstable [Unknown]
  - Diabetic foot [Unknown]
  - Large intestinal ulcer [Unknown]
  - Abdominal pain [Unknown]
  - Cardiac disorder [Unknown]
  - Illness [Recovered/Resolved]
  - Wound [Unknown]
  - Illness [Unknown]
  - Chronic obstructive pulmonary disease [Unknown]
  - Productive cough [Unknown]
  - Psoriasis [Unknown]

NARRATIVE: CASE EVENT DATE: 20240108
